FAERS Safety Report 21794629 (Version 1)
Quarter: 2022Q4

REPORT INFORMATION
  Report Type: Spontaneous
  Country: None (occurrence: US)
  Receive Date: 20221229
  Receipt Date: 20221229
  Transmission Date: 20230112
  Serious: Yes (Other)
  Sender: FDA-Public Use
  Company Number: US-Bio Products Laboratory Ltd-2136267

PATIENT
  Age: 16 Year
  Sex: Male

DRUGS (5)
  1. HUMAN IMMUNOGLOBULIN G [Suspect]
     Active Substance: HUMAN IMMUNOGLOBULIN G
     Indication: Transplant rejection
     Route: 042
  2. ACTEMRA [Suspect]
     Active Substance: TOCILIZUMAB
  3. MYCOPHENOLATE MOFETIL [Suspect]
     Active Substance: MYCOPHENOLATE MOFETIL
  4. PREDNISONE [Suspect]
     Active Substance: PREDNISONE
  5. TACROLIMUS [Suspect]
     Active Substance: TACROLIMUS

REACTIONS (3)
  - Histoplasmosis disseminated [Unknown]
  - Drug ineffective for unapproved indication [Unknown]
  - Off label use [Unknown]
